FAERS Safety Report 11769535 (Version 2)
Quarter: 2015Q4

REPORT INFORMATION
  Report Type: Report from Study
  Country: US (occurrence: US)
  Receive Date: 20151123
  Receipt Date: 20151217
  Transmission Date: 20160304
  Serious: Yes (Other)
  Sender: FDA-Public Use
  Company Number: US-BAXALTA-2015BLT002783

PATIENT
  Age: 31 Year
  Sex: Female
  Weight: 78 kg

DRUGS (6)
  1. GAMMAGARD LIQUID [Suspect]
     Active Substance: HUMAN IMMUNOGLOBULIN G
     Dosage: 25 G, UNK, 60 ML/HR
     Route: 042
     Dates: start: 20151112, end: 20151112
  2. BENADRYL [Concomitant]
     Active Substance: DIPHENHYDRAMINE HYDROCHLORIDE
     Indication: PREMEDICATION
     Dosage: 25 MG, ONCE
     Route: 048
     Dates: start: 20151112, end: 20151112
  3. PREDNISONE. [Concomitant]
     Active Substance: PREDNISONE
     Indication: PREMEDICATION
     Dosage: 40 MG, ONCE
     Route: 048
     Dates: start: 20151112, end: 20151112
  4. TYLENOL [Concomitant]
     Active Substance: ACETAMINOPHEN
     Indication: PREMEDICATION
     Dosage: 650 MG, ONCE
     Route: 048
     Dates: start: 20151112, end: 20151112
  5. NORMAL SALINE [Concomitant]
     Active Substance: SODIUM CHLORIDE
     Indication: PREMEDICATION
     Dosage: 1 L, ONCE
     Route: 040
     Dates: start: 20151112, end: 20151112
  6. GAMMAGARD LIQUID [Suspect]
     Active Substance: HUMAN IMMUNOGLOBULIN G
     Indication: PRIMARY IMMUNODEFICIENCY SYNDROME
     Dosage: 25 G, UNK, 40 ML/HR
     Dates: start: 20151112

REACTIONS (7)
  - Migraine [Recovered/Resolved]
  - Weight increased [Recovered/Resolved]
  - Flank pain [Recovered/Resolved]
  - Chest pain [Recovered/Resolved]
  - Oedema [Recovered/Resolved]
  - Blood pressure decreased [Recovered/Resolved]
  - Abdominal pain [Recovered/Resolved]

NARRATIVE: CASE EVENT DATE: 20151112
